FAERS Safety Report 13559713 (Version 1)
Quarter: 2017Q2

REPORT INFORMATION
  Report Type: Spontaneous
  Country: US (occurrence: US)
  Receive Date: 20170518
  Receipt Date: 20170518
  Transmission Date: 20170830
  Serious: No
  Sender: FDA-Public Use
  Company Number: US-LUPIN PHARMACEUTICALS INC.-E2B_00007119

PATIENT
  Age: 50 Year
  Sex: Female
  Weight: 77.11 kg

DRUGS (1)
  1. QUETIAPINE TABLETS USP, 200 MG [Suspect]
     Active Substance: QUETIAPINE FUMARATE
     Indication: SLEEP DISORDER
     Dosage: AT BEDTIME
     Route: 048
     Dates: start: 201612

REACTIONS (3)
  - Product use in unapproved indication [Unknown]
  - Insomnia [Not Recovered/Not Resolved]
  - Drug ineffective [Unknown]

NARRATIVE: CASE EVENT DATE: 201612
